FAERS Safety Report 5473571-4 (Version None)
Quarter: 2007Q4

REPORT INFORMATION
  Report Type: 
  Country: None (occurrence: None)
  Receive Date: 20071001
  Receipt Date: 20070424
  Transmission Date: 20080405
  Serious: No
  Sender: FDA-Public Use
  Company Number: US-ASTRAZENECA-2007UW08018

PATIENT
  Age: 51 Year
  Sex: Female
  Weight: 80.7 kg

DRUGS (1)
  1. ARIMIDEX [Suspect]
     Indication: BREAST CANCER
     Route: 048

REACTIONS (3)
  - ARTHRALGIA [None]
  - MUSCLE TIGHTNESS [None]
  - PAIN IN EXTREMITY [None]
